FAERS Safety Report 20126643 (Version 1)
Quarter: 2021Q4

REPORT INFORMATION
  Report Type: Report from Study
  Country: FR (occurrence: FR)
  Receive Date: 20211129
  Receipt Date: 20211129
  Transmission Date: 20220303
  Serious: Yes (Other)
  Sender: FDA-Public Use
  Company Number: FR-TAKEDA-FR202029224

PATIENT
  Age: 43 Year
  Sex: Female

DRUGS (14)
  1. TEDUGLUTIDE [Suspect]
     Active Substance: TEDUGLUTIDE
     Indication: Short-bowel syndrome
     Dosage: 2.8 MILLIGRAM (TED DAILY DOSE 0.0500 MG/KG, TED DOSES PER WEEK 7)
     Route: 065
     Dates: start: 20170831, end: 20180423
  2. TEDUGLUTIDE [Suspect]
     Active Substance: TEDUGLUTIDE
     Indication: Short-bowel syndrome
     Dosage: 2.8 MILLIGRAM (TED DAILY DOSE 0.0500 MG/KG, TED DOSES PER WEEK 7)
     Route: 065
     Dates: start: 20170831, end: 20180423
  3. TEDUGLUTIDE [Suspect]
     Active Substance: TEDUGLUTIDE
     Indication: Short-bowel syndrome
     Dosage: 2.8 MILLIGRAM (TED DAILY DOSE 0.0500 MG/KG, TED DOSES PER WEEK 7)
     Route: 065
     Dates: start: 20170831, end: 20180423
  4. TEDUGLUTIDE [Suspect]
     Active Substance: TEDUGLUTIDE
     Indication: Short-bowel syndrome
     Dosage: 2.8 MILLIGRAM (TED DAILY DOSE 0.0500 MG/KG, TED DOSES PER WEEK 7)
     Route: 065
     Dates: start: 20170831, end: 20180423
  5. TEDUGLUTIDE [Suspect]
     Active Substance: TEDUGLUTIDE
     Dosage: 2.8 MILLIGRAM (TED DAILY DOSE 0.0500 MG/KG, TED DOSES PER WEEK 7)
     Route: 065
     Dates: start: 20180508
  6. TEDUGLUTIDE [Suspect]
     Active Substance: TEDUGLUTIDE
     Dosage: 2.8 MILLIGRAM (TED DAILY DOSE 0.0500 MG/KG, TED DOSES PER WEEK 7)
     Route: 065
     Dates: start: 20180508
  7. TEDUGLUTIDE [Suspect]
     Active Substance: TEDUGLUTIDE
     Dosage: 2.8 MILLIGRAM (TED DAILY DOSE 0.0500 MG/KG, TED DOSES PER WEEK 7)
     Route: 065
     Dates: start: 20180508
  8. TEDUGLUTIDE [Suspect]
     Active Substance: TEDUGLUTIDE
     Dosage: 2.8 MILLIGRAM (TED DAILY DOSE 0.0500 MG/KG, TED DOSES PER WEEK 7)
     Route: 065
     Dates: start: 20180508
  9. FERROUS FUMARATE [Concomitant]
     Active Substance: FERROUS FUMARATE
     Indication: Iron deficiency
  10. OFLOXACIN [Concomitant]
     Active Substance: OFLOXACIN
     Indication: Infection
  11. CLOXACILLIN [Concomitant]
     Active Substance: CLOXACILLIN
     Indication: Device related infection
     Dosage: 1.80 GRAM, QID
     Route: 042
     Dates: start: 20210704, end: 20210720
  12. MUPIROCIN [Concomitant]
     Active Substance: MUPIROCIN
     Indication: Skin wound
     Dosage: UNK
     Route: 061
     Dates: start: 20210424, end: 20210508
  13. FUSIDIC ACID [Concomitant]
     Active Substance: FUSIDIC ACID
     Indication: Skin wound
     Dosage: UNK
     Route: 061
     Dates: start: 20210308, end: 20210322
  14. PRISTINAMYCIN [Concomitant]
     Active Substance: PRISTINAMYCIN
     Indication: Skin wound
     Dosage: UNK
     Route: 048
     Dates: start: 20201230, end: 20210113

REACTIONS (1)
  - Device related thrombosis [Recovered/Resolved]

NARRATIVE: CASE EVENT DATE: 20200717
